FAERS Safety Report 8606983-8 (Version None)
Quarter: 2012Q3

REPORT INFORMATION
  Report Type: 
  Country: None (occurrence: None)
  Receive Date: 20120820
  Receipt Date: 20120814
  Transmission Date: 20120928
  Serious: Yes (Death, Other)
  Sender: FDA-Public Use
  Company Number: US-PFIZER INC-2012199394

PATIENT
  Age: 67 Year
  Sex: Female

DRUGS (1)
  1. REVATIO [Suspect]
     Indication: PULMONARY HYPERTENSION
     Dosage: UNK, 3X/DAY

REACTIONS (5)
  - TRICUSPID VALVE INCOMPETENCE [None]
  - SYSTEMIC LUPUS ERYTHEMATOSUS [None]
  - PULMONARY HYPERTENSION [None]
  - DRUG INEFFECTIVE [None]
  - NEPHROPATHY [None]
